FAERS Safety Report 5871693-7 (Version None)
Quarter: 2008Q3

REPORT INFORMATION
  Report Type: 
  Country: None (occurrence: None)
  Receive Date: 20080902
  Receipt Date: 20060213
  Transmission Date: 20090109
  Serious: Yes (Death)
  Sender: FDA-Public Use
  Company Number: 2008AL009359

PATIENT
  Age: 70 Year
  Sex: Female

DRUGS (12)
  1. METFORMIN HCL [Suspect]
     Indication: DIABETES MELLITUS
     Dosage: 1000 MG, BID; PO
     Route: 048
  2. COAPROVEL [Concomitant]
  3. ACETAMINOPHEN [Concomitant]
  4. COSYLAN [Concomitant]
  5. LEVOTHYROXINE SODIUM [Concomitant]
  6. DIURAL [Concomitant]
  7. SERETIDE DISKUS [Concomitant]
  8. KESTINE [Concomitant]
  9. SELO-ZOK [Concomitant]
  10. LIPITOR [Concomitant]
  11. DOXYCYCLINE [Concomitant]
  12. VENTOLIN [Concomitant]

REACTIONS (2)
  - ACIDOSIS [None]
  - RENAL FAILURE ACUTE [None]
